FAERS Safety Report 17686066 (Version 1)
Quarter: 2020Q2

REPORT INFORMATION
  Report Type: Spontaneous
  Country: US (occurrence: US)
  Receive Date: 20200420
  Receipt Date: 20200420
  Transmission Date: 20200714
  Serious: Yes (Life-Threatening)
  Sender: FDA-Public Use
  Company Number: None

PATIENT
  Age: 66 Year
  Sex: Male
  Weight: 72 kg

DRUGS (1)
  1. CEFAZOLIN 2 GRAM PREMIX [Suspect]
     Active Substance: CEFAZOLIN SODIUM
     Indication: ANTIBIOTIC PROPHYLAXIS
     Dosage: ?          OTHER FREQUENCY:ONCE;?
     Route: 041

REACTIONS (2)
  - Blood pressure decreased [None]
  - Anaphylactic reaction [None]

NARRATIVE: CASE EVENT DATE: 20200221
